FAERS Safety Report 4310295-0 (Version None)
Quarter: 2004Q1

REPORT INFORMATION
  Report Type: 
  Country: None (occurrence: None)
  Receive Date: 20040303
  Receipt Date: 20031013
  Transmission Date: 20041129
  Serious: Yes (Life-Threatening, Hospitalization, Disabling, Other)
  Sender: FDA-Public Use
  Company Number: WAES 0310USA01574

PATIENT
  Age: 42 Year
  Sex: Female
  Weight: 50 kg

DRUGS (2)
  1. VIOXX [Suspect]
     Indication: BACK INJURY
     Route: 048
     Dates: start: 20020913, end: 20020922
  2. VIOXX [Suspect]
     Indication: CONTUSION
     Route: 048
     Dates: start: 20020913, end: 20020922

REACTIONS (20)
  - ARTERIOVENOUS MALFORMATION [None]
  - BALANCE DISORDER [None]
  - BLOOD PRESSURE DECREASED [None]
  - CEREBRAL HAEMORRHAGE [None]
  - CONVULSION [None]
  - DECREASED ACTIVITY [None]
  - DIZZINESS [None]
  - FACE OEDEMA [None]
  - IMPAIRED DRIVING ABILITY [None]
  - IMPAIRED WORK ABILITY [None]
  - LETHARGY [None]
  - NASAL OEDEMA [None]
  - OEDEMA PERIPHERAL [None]
  - PAIN IN EXTREMITY [None]
  - PRURITUS [None]
  - RENAL FAILURE ACUTE [None]
  - RENAL PAIN [None]
  - VERTIGO [None]
  - VISUAL DISTURBANCE [None]
  - WEIGHT INCREASED [None]
